FAERS Safety Report 10291488 (Version 1)
Quarter: 2014Q3

REPORT INFORMATION
  Report Type: Spontaneous
  Country: US (occurrence: US)
  Receive Date: 20140710
  Receipt Date: 20140710
  Transmission Date: 20150326
  Serious: No
  Sender: FDA-Public Use
  Company Number: US-PURDUE-USA-2013-0104247

PATIENT
  Sex: Female

DRUGS (1)
  1. BUTRANS [Suspect]
     Active Substance: BUPRENORPHINE
     Indication: PRODUCT USED FOR UNKNOWN INDICATION
     Dosage: 20 MCG/HR (EVERY 5 DAYS)
     Route: 062

REACTIONS (4)
  - Application site pruritus [Unknown]
  - Application site irritation [Unknown]
  - Inappropriate schedule of drug administration [Unknown]
  - Application site erythema [Unknown]
